FAERS Safety Report 16791921 (Version 1)
Quarter: 2019Q3

REPORT INFORMATION
  Report Type: Spontaneous
  Country: US (occurrence: US)
  Receive Date: 20190910
  Receipt Date: 20190910
  Transmission Date: 20191005
  Serious: Yes (Death, Hospitalization, Other)
  Sender: FDA-Public Use
  Company Number: US-APOTEX-2019AP021562

PATIENT
  Age: 32 Year
  Sex: Male

DRUGS (3)
  1. ALCOHOL. [Suspect]
     Active Substance: ALCOHOL
     Indication: PRODUCT USED FOR UNKNOWN INDICATION
     Dosage: UNK
     Route: 065
  2. FLECAINIDE ACETATE. [Suspect]
     Active Substance: FLECAINIDE ACETATE
     Indication: PRODUCT USED FOR UNKNOWN INDICATION
     Dosage: 30 DF, UNK  (30 TABLETS)
     Route: 065
  3. METOPROLOL SUCCINATE. [Suspect]
     Active Substance: METOPROLOL SUCCINATE
     Indication: PRODUCT USED FOR UNKNOWN INDICATION
     Dosage: UNK, UNKNOWN AMOUT
     Route: 065

REACTIONS (10)
  - Ventricular fibrillation [Fatal]
  - Intentional overdose [Fatal]
  - Unresponsive to stimuli [Fatal]
  - Pulseless electrical activity [Fatal]
  - Shock [Fatal]
  - Suicide attempt [Fatal]
  - Hypotension [Fatal]
  - Cardiogenic shock [Fatal]
  - Electrocardiogram QRS complex prolonged [Fatal]
  - Cardiac arrest [Fatal]
